FAERS Safety Report 7114587-1 (Version None)
Quarter: 2010Q4

REPORT INFORMATION
  Report Type: 
  Country: None (occurrence: None)
  Receive Date: 20101121
  Receipt Date: 20101109
  Transmission Date: 20110411
  Serious: Yes (Hospitalization, Other)
  Sender: FDA-Public Use
  Company Number: ES-ELI_LILLY_AND_COMPANY-ES201011002536

PATIENT
  Sex: Female
  Weight: 56 kg

DRUGS (13)
  1. FORTEO [Suspect]
     Indication: OSTEOPOROSIS
     Dosage: 20 UG, DAILY (1/D)
     Route: 058
     Dates: start: 20100601
  2. RIVOTRIL [Concomitant]
     Indication: DEPRESSION
     Dosage: 1 D/F, DAILY (1/D)
     Route: 048
  3. PANTOPRAZOLE SODIUM [Concomitant]
     Indication: PROPHYLAXIS
     Dosage: 40 MG, DAILY (1/D)
     Route: 048
  4. SEGURIL [Concomitant]
     Indication: CARDIAC FAILURE
     Dosage: 40 MG, 2/D
     Route: 048
  5. VALSARTAN [Concomitant]
     Indication: HYPERTENSION
     Dosage: 1 D/F, DAILY (1/D)
     Route: 048
  6. MASTICAL D [Concomitant]
     Indication: OSTEOPOROSIS
     Dosage: 1 D/F, DAILY (1/D)
     Route: 048
     Dates: start: 20100601
  7. PRANDIN [Concomitant]
     Indication: DIABETES MELLITUS
     Dosage: 1 D/F, EVERY 8 HRS
     Route: 048
  8. ATORVASTATINA [Concomitant]
     Indication: DYSLIPIDAEMIA
     Dosage: 80 MG, WEEKLY (1/W)
     Route: 048
  9. COROPRES [Concomitant]
     Indication: HYPERTENSION
     Dosage: 12.5 MG, 2/D
     Route: 048
  10. DUPHALAC [Concomitant]
     Indication: CONSTIPATION
     Dosage: 2 D/F, EVERY 8 HRS
     Route: 048
  11. DOBUPAL [Concomitant]
     Indication: DEPRESSION
     Dosage: 1 D/F, DAILY (1/D)
     Route: 048
  12. XUMADOL [Concomitant]
     Indication: PAIN
     Dosage: 1 G, AS NEEDED
     Route: 048
  13. SINTROM [Concomitant]
     Indication: ARRHYTHMIA
     Route: 048
     Dates: start: 20020101

REACTIONS (1)
  - CEREBRAL INFARCTION [None]
